FAERS Safety Report 21259403 (Version 1)
Quarter: 2022Q3

REPORT INFORMATION
  Report Type: Spontaneous
  Country: US (occurrence: None)
  Receive Date: 20220825
  Receipt Date: 20220825
  Transmission Date: 20221026
  Serious: No
  Sender: FDA-Public Use
  Company Number: None

PATIENT
  Age: 76 Year
  Sex: Male

DRUGS (1)
  1. TALTZ [Suspect]
     Active Substance: IXEKIZUMAB
     Indication: Psoriasis
     Dosage: 80 MG EVERY 14 DAYS SC
     Route: 058
     Dates: start: 20210727

REACTIONS (3)
  - Device malfunction [None]
  - Device leakage [None]
  - Product dose omission issue [None]

NARRATIVE: CASE EVENT DATE: 20220824
